FAERS Safety Report 15807621 (Version 1)
Quarter: 2019Q1

REPORT INFORMATION
  Report Type: Spontaneous
  Country: GR (occurrence: GR)
  Receive Date: 20190110
  Receipt Date: 20190110
  Transmission Date: 20190417
  Serious: Yes (Other)
  Sender: FDA-Public Use
  Company Number: GR-BAUSCH-BL-2019-000334

PATIENT
  Age: 58 Year
  Sex: Female

DRUGS (8)
  1. AMOXICILLIN. [Suspect]
     Active Substance: AMOXICILLIN
     Indication: TOOTH ABSCESS
     Route: 065
     Dates: start: 20180312, end: 20180318
  2. CAFFEINE/PARACETAMOL [Suspect]
     Active Substance: ACETAMINOPHEN\CAFFEINE
     Indication: HEADACHE
     Route: 048
     Dates: start: 20180314
  3. LONARID-N [Suspect]
     Active Substance: ACETAMINOPHEN\CAFFEINE\CODEINE PHOSPHATE
     Indication: HEADACHE
     Route: 048
     Dates: start: 20180314
  4. NORGESIC (CAFFEINE,ORPHENADRINE CITRATE,PROPYPHENAZONE) [Suspect]
     Active Substance: CAFFEINE\ORPHENADRINE CITRATE\PROPYPHENAZONE
     Indication: MYALGIA
     Route: 065
     Dates: start: 20180312
  5. TENORMIN [Interacting]
     Active Substance: ATENOLOL
     Indication: TACHYCARDIA
     Route: 065
  6. BIOFENAC (ACECLOFENAC) [Suspect]
     Active Substance: ACECLOFENAC
     Indication: MYALGIA
     Route: 065
     Dates: start: 20180412
  7. DICLOFENAC SODIUM. [Suspect]
     Active Substance: DICLOFENAC SODIUM
     Indication: MYALGIA
     Route: 065
     Dates: start: 20180312
  8. ZOVIRAX [Interacting]
     Active Substance: ACYCLOVIR
     Indication: HERPES VIRUS INFECTION
     Route: 065
     Dates: start: 20180310, end: 20180320

REACTIONS (5)
  - Vitreous detachment [Not Recovered/Not Resolved]
  - Vision blurred [Not Recovered/Not Resolved]
  - Vertigo [Recovered/Resolved]
  - Hypoaesthesia [Recovered/Resolved]
  - Drug interaction [Unknown]

NARRATIVE: CASE EVENT DATE: 20180314
